FAERS Safety Report 4583532-5 (Version None)
Quarter: 2005Q1

REPORT INFORMATION
  Report Type: 
  Country: None (occurrence: None)
  Receive Date: 20050211
  Receipt Date: 20041223
  Transmission Date: 20050727
  Serious: Yes (Other)
  Sender: FDA-Public Use
  Company Number: F(LIT)06/0105

PATIENT
  Age: 60 Year
  Sex: Male

DRUGS (4)
  1. ENALAPRIL [Suspect]
     Indication: UPPER RESPIRATORY TRACT INFECTION
     Dosage: 20 MG DAILY
  2. CYCLOSPORINE [Concomitant]
  3. PREDNISONE [Concomitant]
  4. OMEPRAZOLE [Concomitant]

REACTIONS (2)
  - HYPONATRAEMIA [None]
  - INAPPROPRIATE ANTIDIURETIC HORMONE SECRETION [None]
